FAERS Safety Report 4904581-0 (Version None)
Quarter: 2006Q1

REPORT INFORMATION
  Report Type: 
  Country: None (occurrence: None)
  Receive Date: 20060208
  Receipt Date: 20060120
  Transmission Date: 20060701
  Serious: Yes (Other)
  Sender: FDA-Public Use
  Company Number: SE-ROCHE-433046

PATIENT
  Age: 20 Year
  Sex: Male
  Weight: 80 kg

DRUGS (1)
  1. ROACCUTAN [Suspect]
     Indication: DRUG USE FOR UNKNOWN INDICATION
     Dosage: TREATMENT STATED AS STOPPED 2 YEARS AGO.
     Route: 065
     Dates: start: 20040615, end: 20040615

REACTIONS (9)
  - ARTHRALGIA [None]
  - DEPRESSION [None]
  - EPISTAXIS [None]
  - MUSCULAR WEAKNESS [None]
  - NAUSEA [None]
  - PERSONALITY CHANGE [None]
  - SKIN DISORDER [None]
  - SUICIDAL IDEATION [None]
  - VOMITING [None]
